FAERS Safety Report 25633083 (Version 3)
Quarter: 2025Q3

REPORT INFORMATION
  Report Type: Spontaneous
  Country: RU (occurrence: RU)
  Receive Date: 20250801
  Receipt Date: 20250924
  Transmission Date: 20251020
  Serious: Yes (Life-Threatening, Hospitalization, Other)
  Sender: RANBAXY
  Company Number: RU-SUN PHARMACEUTICAL INDUSTRIES LTD-2025R1-517714

PATIENT
  Age: 83 Year
  Sex: Female

DRUGS (18)
  1. ATORVASTATIN [Interacting]
     Active Substance: ATORVASTATIN
     Indication: Dyslipidaemia
     Dosage: 20 MILLIGRAM, DAILY
     Route: 065
  2. ATORVASTATIN [Interacting]
     Active Substance: ATORVASTATIN
     Indication: Arteriosclerosis
  3. ATORVASTATIN [Interacting]
     Active Substance: ATORVASTATIN
     Indication: Carotid artery stenosis
  4. ROSUVASTATIN [Interacting]
     Active Substance: ROSUVASTATIN
     Indication: Dyslipidaemia
     Dosage: 40 MILLIGRAM, DAILY
     Route: 065
  5. ROSUVASTATIN [Interacting]
     Active Substance: ROSUVASTATIN
     Indication: Arteriosclerosis
  6. ROSUVASTATIN [Interacting]
     Active Substance: ROSUVASTATIN
     Indication: Carotid artery stenosis
  7. TICAGRELOR [Interacting]
     Active Substance: TICAGRELOR
     Indication: Antiplatelet therapy
     Route: 065
  8. ASPIRIN [Concomitant]
     Active Substance: ASPIRIN
     Indication: Dyslipidaemia
     Route: 065
  9. ASPIRIN [Concomitant]
     Active Substance: ASPIRIN
     Indication: Arteriosclerosis
  10. ASPIRIN [Concomitant]
     Active Substance: ASPIRIN
     Indication: Carotid artery stenosis
  11. BISOPROLOL [Concomitant]
     Active Substance: BISOPROLOL
     Indication: Coronary artery disease
     Route: 065
  12. INDAPAMIDE [Concomitant]
     Active Substance: INDAPAMIDE
     Indication: Dyslipidaemia
     Route: 065
  13. INDAPAMIDE [Concomitant]
     Active Substance: INDAPAMIDE
     Indication: Arteriosclerosis
  14. INDAPAMIDE [Concomitant]
     Active Substance: INDAPAMIDE
     Indication: Carotid artery stenosis
  15. PERINDOPRIL [Concomitant]
     Active Substance: PERINDOPRIL
     Indication: Dyslipidaemia
     Route: 065
  16. PERINDOPRIL [Concomitant]
     Active Substance: PERINDOPRIL
     Indication: Arteriosclerosis
  17. PERINDOPRIL [Concomitant]
     Active Substance: PERINDOPRIL
     Indication: Carotid artery stenosis
  18. SPIRONOLACTONE [Concomitant]
     Active Substance: SPIRONOLACTONE
     Indication: Coronary artery disease
     Route: 065

REACTIONS (5)
  - Rhabdomyolysis [Recovered/Resolved]
  - Acute kidney injury [Recovered/Resolved]
  - Drug-induced liver injury [Recovered/Resolved]
  - Multiple organ dysfunction syndrome [Recovered/Resolved]
  - Drug interaction [Unknown]
